FAERS Safety Report 14130677 (Version 3)
Quarter: 2018Q1

REPORT INFORMATION
  Report Type: Report from Study
  Country: US (occurrence: US)
  Receive Date: 20171026
  Receipt Date: 20180125
  Transmission Date: 20180508
  Serious: No
  Sender: FDA-Public Use
  Company Number: US-AMGEN-USASL2017114839

PATIENT
  Age: 56 Year
  Sex: Male

DRUGS (1)
  1. REPATHA [Suspect]
     Active Substance: EVOLOCUMAB
     Indication: HYPERCHOLESTEROLAEMIA
     Dosage: 140 MG, Q2WK
     Route: 065

REACTIONS (8)
  - Chills [Unknown]
  - Back pain [Unknown]
  - Pollakiuria [Unknown]
  - Headache [Unknown]
  - Injection site bruising [Unknown]
  - Blood pressure decreased [Unknown]
  - Pyrexia [Unknown]
  - Paraesthesia [Unknown]
